FAERS Safety Report 8129228-4 (Version None)
Quarter: 2012Q1

REPORT INFORMATION
  Report Type: 
  Country: None (occurrence: None)
  Receive Date: 20120210
  Receipt Date: 20120131
  Transmission Date: 20120608
  Serious: Yes (Hospitalization)
  Sender: FDA-Public Use
  Company Number: IE-MEDIMMUNE-MEDI-0014786

PATIENT
  Sex: Male

DRUGS (3)
  1. FERROUS SULFATE TAB [Concomitant]
  2. ERGOCALCIFEROL [Concomitant]
  3. SYNAGIS [Suspect]
     Route: 030
     Dates: start: 20120109, end: 20120109

REACTIONS (1)
  - BRONCHIOLITIS [None]
